FAERS Safety Report 6828012-9 (Version None)
Quarter: 2010Q3

REPORT INFORMATION
  Report Type: 
  Country: None (occurrence: None)
  Receive Date: 20100709
  Receipt Date: 20100701
  Transmission Date: 20110219
  Serious: Yes (Congenital Anomaly)
  Sender: FDA-Public Use
  Company Number: A0869315A

PATIENT

DRUGS (4)
  1. ZIAGEN [Suspect]
     Indication: ANTIVIRAL TREATMENT
  2. EPIVIR [Suspect]
     Indication: ANTIVIRAL TREATMENT
  3. SUSTIVA [Suspect]
     Indication: ANTIVIRAL TREATMENT
  4. VIRACEPT [Suspect]
     Indication: ANTIVIRAL TREATMENT

REACTIONS (2)
  - DRUG EXPOSURE DURING PREGNANCY [None]
  - POLYDACTYLY [None]
